FAERS Safety Report 6886776-2 (Version None)
Quarter: 2010Q3

REPORT INFORMATION
  Report Type: 
  Country: None (occurrence: None)
  Receive Date: 20100730
  Receipt Date: 20100720
  Transmission Date: 20110219
  Serious: Yes (Hospitalization, Other)
  Sender: FDA-Public Use
  Company Number: JP-PFIZER INC-2010090607

PATIENT
  Age: 60 Year
  Sex: Male

DRUGS (1)
  1. ZYVOX [Suspect]
     Route: 048

REACTIONS (2)
  - HEPATIC FUNCTION ABNORMAL [None]
  - HYPOGLYCAEMIA [None]
